FAERS Safety Report 5729314-X (Version None)
Quarter: 2008Q2

REPORT INFORMATION
  Report Type: 
  Country: None (occurrence: None)
  Receive Date: 20080506
  Receipt Date: 20080428
  Transmission Date: 20081010
  Serious: Yes (Hospitalization)
  Sender: FDA-Public Use
  Company Number: US-AMGEN-QUU276787

PATIENT
  Sex: Female

DRUGS (2)
  1. ENBREL [Suspect]
     Indication: RHEUMATOID ARTHRITIS
     Route: 058
     Dates: start: 20070312
  2. METHOTREXATE [Concomitant]
     Route: 048
     Dates: start: 20070101

REACTIONS (4)
  - ABDOMINAL DISCOMFORT [None]
  - GALLBLADDER OPERATION [None]
  - NAUSEA [None]
  - VOMITING [None]
